FAERS Safety Report 19923731 (Version 1)
Quarter: 2021Q4

REPORT INFORMATION
  Report Type: Report from Study
  Country: MX (occurrence: MX)
  Receive Date: 20211006
  Receipt Date: 20211006
  Transmission Date: 20220304
  Serious: Yes (Hospitalization)
  Sender: FDA-Public Use
  Company Number: MX-NOVARTISPH-NVSC2021MX223403

PATIENT
  Age: 41 Year
  Sex: Male
  Weight: 71 kg

DRUGS (1)
  1. GILENYA [Suspect]
     Active Substance: FINGOLIMOD HYDROCHLORIDE
     Indication: Multiple sclerosis
     Dosage: 0.5 MG, QD
     Route: 048

REACTIONS (4)
  - COVID-19 [Not Recovered/Not Resolved]
  - Oropharyngeal pain [Unknown]
  - Pyrexia [Unknown]
  - Productive cough [Unknown]

NARRATIVE: CASE EVENT DATE: 20210923
